FAERS Safety Report 12242044 (Version 1)
Quarter: 2016Q2

REPORT INFORMATION
  Report Type: Spontaneous
  Country: US (occurrence: US)
  Receive Date: 20160406
  Receipt Date: 20160406
  Transmission Date: 20160815
  Serious: Yes (Other)
  Sender: FDA-Public Use
  Company Number: US-ELI_LILLY_AND_COMPANY-US201603010055

PATIENT
  Sex: Male

DRUGS (7)
  1. CLOZARIL [Concomitant]
     Active Substance: CLOZAPINE
     Dosage: UNK, UNKNOWN
     Route: 065
  2. ZYPREXA [Suspect]
     Active Substance: OLANZAPINE
     Indication: CRANIOCEREBRAL INJURY
     Dosage: UNK, UNKNOWN
     Route: 048
     Dates: start: 1999
  3. KLONOPIN [Concomitant]
     Active Substance: CLONAZEPAM
     Dosage: UNK, UNKNOWN
     Route: 065
  4. TRAZODONE [Concomitant]
     Active Substance: TRAZODONE HYDROCHLORIDE
     Dosage: UNK, UNKNOWN
     Route: 065
  5. ZYPREXA RELPREVV [Suspect]
     Active Substance: OLANZAPINE PAMOATE
     Indication: CRANIOCEREBRAL INJURY
     Dosage: UNK, UNKNOWN
     Route: 030
  6. DEPAKOTE [Concomitant]
     Active Substance: DIVALPROEX SODIUM
     Dosage: UNK, UNKNOWN
     Route: 065
  7. RISPERDAL [Concomitant]
     Active Substance: RISPERIDONE
     Dosage: UNK, UNKNOWN
     Route: 065

REACTIONS (13)
  - Scratch [Unknown]
  - Tardive dyskinesia [Unknown]
  - Diarrhoea [Unknown]
  - Urinary incontinence [Unknown]
  - Homicidal ideation [Not Recovered/Not Resolved]
  - Gait disturbance [Unknown]
  - Facial spasm [Unknown]
  - Agitation [Not Recovered/Not Resolved]
  - Off label use [Unknown]
  - Akathisia [Unknown]
  - Accidental overdose [Not Recovered/Not Resolved]
  - Abnormal behaviour [Unknown]
  - Confusional state [Unknown]

NARRATIVE: CASE EVENT DATE: 1999
